FAERS Safety Report 5857949-2 (Version None)
Quarter: 2008Q3

REPORT INFORMATION
  Report Type: 
  Country: None (occurrence: None)
  Receive Date: 20080826
  Receipt Date: 20080821
  Transmission Date: 20090109
  Serious: Yes (Life-Threatening, Hospitalization)
  Sender: FDA-Public Use
  Company Number: US-JNJFOC-20080805490

PATIENT
  Age: 47 Year
  Sex: Male
  Weight: 72 kg

DRUGS (5)
  1. DOXIL [Suspect]
     Indication: LYMPHOMA AIDS RELATED
     Dosage: CYCLE 1
     Route: 042
  2. CYCLOPHOSPHAMIDE [Suspect]
     Indication: LYMPHOMA AIDS RELATED
     Dosage: CYCLE 1
     Route: 065
  3. CYTARABINE [Suspect]
     Indication: LYMPHOMA AIDS RELATED
     Dosage: CYCLE 1
     Route: 065
  4. PREDNISONE TAB [Suspect]
     Indication: LYMPHOMA AIDS RELATED
     Dosage: CYCLE 1
     Route: 065
  5. VINCRISTINE [Suspect]
     Indication: LYMPHOMA AIDS RELATED
     Dosage: CYCLE 1
     Route: 065

REACTIONS (5)
  - ANAEMIA [None]
  - BLOOD AMYLASE INCREASED [None]
  - LEUKOPENIA [None]
  - NEUTROPENIA [None]
  - THROMBOCYTOPENIA [None]
